FAERS Safety Report 9357387 (Version 2)
Quarter: 2013Q3

REPORT INFORMATION
  Report Type: Report from Study
  Country: CZ (occurrence: CZ)
  Receive Date: 20130620
  Receipt Date: 20130718
  Transmission Date: 20140515
  Serious: Yes (Hospitalization)
  Sender: FDA-Public Use
  Company Number: CZ-JNJFOC-20130609349

PATIENT
  Sex: Female

DRUGS (8)
  1. REMICADE [Suspect]
     Indication: RHEUMATOID ARTHRITIS
     Route: 042
     Dates: start: 20040422
  2. TROMBEX [Concomitant]
     Route: 065
  3. ANOPYRIN [Concomitant]
     Route: 065
  4. SORTIS (ATORVASTATIN) [Concomitant]
     Route: 065
  5. CONCOR [Concomitant]
     Dosage: 1/2 TABLET ONCE A DAY
     Route: 065
  6. NOLPAZA [Concomitant]
     Route: 065
  7. MOVALIS [Concomitant]
     Route: 065
  8. MTX [Concomitant]
     Dosage: FRIDAY AND SATURDAY
     Route: 065

REACTIONS (1)
  - Acute myocardial infarction [Recovering/Resolving]
